FAERS Safety Report 9350857 (Version 2)
Quarter: 2013Q2

REPORT INFORMATION
  Report Type: Spontaneous
  Country: JP (occurrence: JP)
  Receive Date: 20130617
  Receipt Date: 20130617
  Transmission Date: 20140414
  Serious: Yes (Hospitalization)
  Sender: FDA-Public Use
  Company Number: JP-ASTELLAS-2013JP005230

PATIENT
  Age: 87 Year
  Sex: Female
  Weight: 63.7 kg

DRUGS (8)
  1. VESICARE [Suspect]
     Indication: HYPERTONIC BLADDER
     Dosage: 2.5 MG, UID/QD
     Route: 048
     Dates: end: 20130405
  2. SELOKEN /00376902/ [Suspect]
     Dosage: 20 MG, BID
     Route: 048
  3. DIOVAN [Concomitant]
     Dosage: 80 MG, BID
     Route: 048
  4. PRORENAL [Concomitant]
     Dosage: 5 UG, BID
     Route: 048
  5. PARIET [Concomitant]
     Dosage: 10 MG, BID
     Route: 048
  6. BAYASPIRIN [Concomitant]
     Dosage: 100 MG, UID/QD
     Route: 048
  7. AMLODIN [Concomitant]
     Dosage: 10 MG, UID/QD
     Route: 048
  8. EPADEL                             /01682401/ [Concomitant]
     Dosage: 900 MG, UID/QD
     Route: 048

REACTIONS (2)
  - Altered state of consciousness [Recovering/Resolving]
  - Blood pressure decreased [Unknown]
